FAERS Safety Report 17566876 (Version 1)
Quarter: 2020Q1

REPORT INFORMATION
  Report Type: Spontaneous
  Country: JP (occurrence: JP)
  Receive Date: 20200320
  Receipt Date: 20200320
  Transmission Date: 20200409
  Serious: Yes (Hospitalization, Other)
  Sender: FDA-Public Use
  Company Number: JP-ACTELION-A-CH2020-203074

PATIENT
  Age: 43 Year
  Sex: Female

DRUGS (4)
  1. AMBRISENTAN [Concomitant]
     Active Substance: AMBRISENTAN
  2. EPOPROSTENOL SODIUM. [Suspect]
     Active Substance: EPOPROSTENOL SODIUM
     Indication: PULMONARY ARTERIAL HYPERTENSION
     Route: 042
  3. TADALAFIL. [Concomitant]
     Active Substance: TADALAFIL
  4. OXYGEN. [Concomitant]
     Active Substance: OXYGEN
     Dosage: 3 L, QD

REACTIONS (7)
  - Right ventricular dilatation [Unknown]
  - Headache [Unknown]
  - Pulmonary arterial pressure increased [Unknown]
  - Pulmonary valve incompetence [Unknown]
  - Right ventricular failure [Recovered/Resolved]
  - Lung transplant [Unknown]
  - Right ventricular hypertrophy [Unknown]
